FAERS Safety Report 24560852 (Version 1)
Quarter: 2024Q4

REPORT INFORMATION
  Report Type: Spontaneous
  Country: CN (occurrence: CN)
  Receive Date: 20241029
  Receipt Date: 20241029
  Transmission Date: 20250114
  Serious: Yes (Life-Threatening, Hospitalization)
  Sender: PFIZER
  Company Number: CN-PFIZER INC-PV202400138306

PATIENT
  Age: 61 Year
  Sex: Female
  Weight: 52 kg

DRUGS (5)
  1. EPIRUBICIN HYDROCHLORIDE [Suspect]
     Active Substance: EPIRUBICIN HYDROCHLORIDE
     Indication: Breast cancer
     Dosage: 10 MG, 1X/DAY
     Route: 041
     Dates: start: 20241010, end: 20241010
  2. DOCETAXEL [Suspect]
     Active Substance: DOCETAXEL
     Indication: Breast cancer
     Dosage: 20 MG, 1X/DAY
     Route: 041
     Dates: start: 20241010, end: 20241010
  3. CYCLOPHOSPHAMIDE [Suspect]
     Active Substance: CYCLOPHOSPHAMIDE
     Indication: Breast cancer
     Dosage: 0.2 G, 1X/DAY
     Route: 041
     Dates: start: 20241010, end: 20241010
  4. SODIUM CHLORIDE [Concomitant]
     Active Substance: SODIUM CHLORIDE
     Indication: Vehicle solution use
     Dosage: 100 ML, 2X/DAY
     Route: 041
     Dates: start: 20241010, end: 20241010
  5. DEXTROSE [Concomitant]
     Active Substance: DEXTROSE MONOHYDRATE
     Indication: Vehicle solution use
     Dosage: 250 ML, 1X/DAY
     Route: 041
     Dates: start: 20241010, end: 20241010

REACTIONS (8)
  - Nausea [Recovering/Resolving]
  - Vomiting [Recovering/Resolving]
  - White blood cell count decreased [Recovering/Resolving]
  - Neutrophil count decreased [Recovering/Resolving]
  - Red blood cell count decreased [Recovering/Resolving]
  - Hypochromic anaemia [Recovering/Resolving]
  - Platelet count decreased [Recovering/Resolving]
  - Myelosuppression [Recovering/Resolving]

NARRATIVE: CASE EVENT DATE: 20241013
